FAERS Safety Report 7798437-6 (Version None)
Quarter: 2011Q4

REPORT INFORMATION
  Report Type: 
  Country: None (occurrence: None)
  Receive Date: 20111005
  Receipt Date: 20110929
  Transmission Date: 20120403
  Serious: Yes (Disabling, Other)
  Sender: FDA-Public Use
  Company Number: GB-ROCHE-571541

PATIENT
  Sex: Female
  Weight: 67.6 kg

DRUGS (7)
  1. AVASTIN [Suspect]
     Indication: COLON CANCER
     Dosage: DOSAGE FORM :INFUSION. CURRENT CYCLE NUMBER: 8. DATE WHEN MOST RECENT DOSE WAS GIVEN : 25 APRIL 2008
     Route: 042
     Dates: start: 20071123, end: 20080425
  2. XELODA [Suspect]
     Indication: COLON CANCER
     Dosage: CURRENT CYCLE NUMBER-8. DOSE WHEN MOST RECENT DOSE WAS GIVEN 25 APRIL 2008. % DOSE REDUCTION :30.
     Route: 048
  3. ATENOLOL [Concomitant]
     Indication: HYPERTENSION
     Dosage: ROUTE : OD
     Route: 048
  4. SIMVASTATIN [Concomitant]
     Indication: HYPERCHOLESTEROLAEMIA
     Route: 048
  5. ACYCLOVIR [Concomitant]
     Indication: CHEILITIS
     Route: 061
     Dates: start: 20071213, end: 20080605
  6. PYRIDOXINE HCL [Concomitant]
     Indication: PALMAR-PLANTAR ERYTHRODYSAESTHESIA SYNDROME
     Route: 065
  7. DIFFLAM [Concomitant]
     Indication: STOMATITIS

REACTIONS (1)
  - CHEILITIS [None]
